FAERS Safety Report 5341135-9 (Version None)
Quarter: 2007Q2

REPORT INFORMATION
  Report Type: 
  Country: None (occurrence: None)
  Receive Date: 20070530
  Receipt Date: 20070516
  Transmission Date: 20071010
  Serious: Yes (Hospitalization)
  Sender: FDA-Public Use
  Company Number: 2007BI009497

PATIENT
  Age: 63 Year
  Sex: Female

DRUGS (4)
  1. NATALIZUMAB [Suspect]
     Indication: MULTIPLE SCLEROSIS
     Dosage: 200 MG; QM; IV
     Route: 042
     Dates: start: 20061229, end: 20070301
  2. LEVOXYL [Concomitant]
  3. BONIVA [Concomitant]
  4. AMBIEN [Concomitant]

REACTIONS (8)
  - CONDITION AGGRAVATED [None]
  - CSF PROTEIN INCREASED [None]
  - FACIAL PARESIS [None]
  - MULTIPLE SCLEROSIS [None]
  - NEUROMYELITIS OPTICA [None]
  - PNEUMONIA [None]
  - QUADRIPARESIS [None]
  - URINARY TRACT INFECTION [None]
